FAERS Safety Report 7891863-6 (Version None)
Quarter: 2011Q4

REPORT INFORMATION
  Report Type: 
  Country: None (occurrence: None)
  Receive Date: 20111103
  Receipt Date: 20110810
  Transmission Date: 20120403
  Serious: Yes (Hospitalization)
  Sender: FDA-Public Use
  Company Number: US-AMGEN-USASP2011040840

PATIENT
  Age: 42 Year
  Sex: Female

DRUGS (3)
  1. METHOTREXATE [Concomitant]
     Dosage: 1 MG, QWK
     Dates: start: 20100201
  2. ENBREL [Suspect]
     Dosage: 50 MG, QWK
     Dates: start: 20060101, end: 20080101
  3. ENBREL [Suspect]
     Indication: RHEUMATOID ARTHRITIS
     Dosage: 50 MG, QWK
     Dates: start: 20090101, end: 20091101

REACTIONS (2)
  - MASTITIS [None]
  - ANXIETY [None]
